FAERS Safety Report 5600239-3 (Version None)
Quarter: 2008Q1

REPORT INFORMATION
  Report Type: 
  Country: None (occurrence: None)
  Receive Date: 20080123
  Receipt Date: 20080116
  Transmission Date: 20080703
  Serious: Yes (Death)
  Sender: FDA-Public Use
  Company Number: GB-MERCK-0801GBR00058

PATIENT
  Age: 76 Year
  Sex: Male

DRUGS (1)
  1. DECADRON [Suspect]
     Indication: BRAIN NEOPLASM
     Route: 048
     Dates: start: 20070214, end: 20070313

REACTIONS (3)
  - DEATH [None]
  - GASTRITIS [None]
  - OESOPHAGITIS [None]
